FAERS Safety Report 23359001 (Version 4)
Quarter: 2024Q1

REPORT INFORMATION
  Report Type: Spontaneous
  Country: CA (occurrence: CA)
  Receive Date: 20240102
  Receipt Date: 20240318
  Transmission Date: 20240410
  Serious: Yes (Hospitalization, Other)
  Sender: FDA-Public Use
  Company Number: CA-PFIZER INC-PV202300207681

PATIENT
  Age: 70 Year
  Sex: Male

DRUGS (6)
  1. ZIRABEV [Suspect]
     Active Substance: BEVACIZUMAB-BVZR
     Indication: Hereditary haemorrhagic telangiectasia
     Dosage: 5 MG/KG (365 MG), EVERY 4 WEEKS
     Route: 042
     Dates: start: 20220530, end: 20220705
  2. ZIRABEV [Suspect]
     Active Substance: BEVACIZUMAB-BVZR
     Dosage: 5 MG/KG (365 MG), EVERY 4 WEEKS
     Route: 042
     Dates: start: 20230519, end: 2023
  3. PANTOPRAZOLE [Concomitant]
     Active Substance: PANTOPRAZOLE
     Dosage: UNK
  4. AMLODIPINE [Concomitant]
     Active Substance: AMLODIPINE BESYLATE
     Dosage: UNK
  5. CLONAZEPAM [Concomitant]
     Active Substance: CLONAZEPAM
     Dosage: UNK
  6. TRANEXAMIC ACID [Concomitant]
     Active Substance: TRANEXAMIC ACID
     Dosage: UNK

REACTIONS (6)
  - Volvulus [Unknown]
  - Intestinal obstruction [Unknown]
  - Peritonitis bacterial [Unknown]
  - Intestinal perforation [Unknown]
  - Malaise [Unknown]
  - Appendicitis perforated [Recovered/Resolved]

NARRATIVE: CASE EVENT DATE: 20220701
